FAERS Safety Report 5870833-3 (Version None)
Quarter: 2008Q3

REPORT INFORMATION
  Report Type: 
  Country: None (occurrence: None)
  Receive Date: 20080904
  Receipt Date: 20080827
  Transmission Date: 20090109
  Serious: Yes (Hospitalization)
  Sender: FDA-Public Use
  Company Number: US-ABBOTT-08P-163-0472825-00

PATIENT
  Sex: Female
  Weight: 93.07 kg

DRUGS (7)
  1. SYNTHROID [Suspect]
     Indication: THYROIDECTOMY
     Route: 048
     Dates: start: 20080310, end: 20080501
  2. SYNTHROID [Suspect]
     Route: 048
     Dates: start: 20080501, end: 20080701
  3. SYNTHROID [Suspect]
     Route: 048
     Dates: start: 20080701
  4. CALCITRIOL [Suspect]
     Indication: HYPOCALCAEMIA
     Route: 048
     Dates: start: 20080312, end: 20080811
  5. CALCITRIOL [Suspect]
     Route: 048
     Dates: start: 20080825
  6. LEKOVIT CA [Concomitant]
     Indication: MINERAL SUPPLEMENTATION
     Dosage: 8 PILLS
     Route: 048
     Dates: start: 20080301
  7. UNKNOWN DIET PILL [Concomitant]
     Indication: WEIGHT INCREASED
     Route: 048
     Dates: start: 20080701

REACTIONS (13)
  - ABASIA [None]
  - ANXIETY [None]
  - APHASIA [None]
  - CHEST PAIN [None]
  - CHOKING SENSATION [None]
  - FATIGUE [None]
  - FEELING ABNORMAL [None]
  - MENTAL IMPAIRMENT [None]
  - NERVOUSNESS [None]
  - PAIN [None]
  - PARAESTHESIA [None]
  - SENSORY DISTURBANCE [None]
  - WEIGHT INCREASED [None]
